FAERS Safety Report 11865743 (Version 3)
Quarter: 2016Q1

REPORT INFORMATION
  Report Type: Spontaneous
  Country: US (occurrence: US)
  Receive Date: 20151223
  Receipt Date: 20160120
  Transmission Date: 20160526
  Serious: Yes (Hospitalization, Other)
  Sender: FDA-Public Use
  Company Number: US-JNJFOC-20151214775

PATIENT
  Age: 58 Year
  Sex: Female
  Weight: 54.42 kg

DRUGS (12)
  1. ADEMPAS [Suspect]
     Active Substance: RIOCIGUAT
     Indication: PULMONARY HYPERTENSION
     Route: 048
  2. ASPIRIN. [Concomitant]
     Active Substance: ASPIRIN
     Route: 065
  3. ADEMPAS [Suspect]
     Active Substance: RIOCIGUAT
     Indication: PULMONARY HYPERTENSION
     Route: 048
  4. ADEMPAS [Suspect]
     Active Substance: RIOCIGUAT
     Indication: PULMONARY HYPERTENSION
     Route: 048
  5. EPOPROSTENOL. [Suspect]
     Active Substance: EPOPROSTENOL
     Indication: PRODUCT USED FOR UNKNOWN INDICATION
     Route: 065
  6. OPSUMIT [Concomitant]
     Active Substance: MACITENTAN
     Route: 065
  7. BOSENTAN [Concomitant]
     Active Substance: BOSENTAN
     Route: 065
  8. ADEMPAS [Suspect]
     Active Substance: RIOCIGUAT
     Indication: PULMONARY HYPERTENSION
     Route: 048
     Dates: start: 20140512
  9. ADEMPAS [Suspect]
     Active Substance: RIOCIGUAT
     Indication: PULMONARY HYPERTENSION
     Route: 048
  10. ADEMPAS [Suspect]
     Active Substance: RIOCIGUAT
     Indication: PULMONARY HYPERTENSION
     Route: 048
  11. XARELTO [Suspect]
     Active Substance: RIVAROXABAN
     Indication: PRODUCT USED FOR UNKNOWN INDICATION
     Route: 048
  12. ADEMPAS [Suspect]
     Active Substance: RIOCIGUAT
     Indication: PULMONARY HYPERTENSION
     Route: 048

REACTIONS (36)
  - Chronic obstructive pulmonary disease [Unknown]
  - Haemorrhage [Unknown]
  - Musculoskeletal pain [Unknown]
  - Hypogeusia [Unknown]
  - Bone pain [Unknown]
  - Cardiac septal defect [Unknown]
  - Peripheral swelling [Unknown]
  - Weight decreased [Unknown]
  - Weight increased [Unknown]
  - Mood altered [Unknown]
  - Headache [Unknown]
  - Pain of skin [Unknown]
  - Lower respiratory tract infection [Unknown]
  - Dyspnoea [Unknown]
  - Fatigue [Unknown]
  - Facial pain [Unknown]
  - Malaise [Unknown]
  - Asthenia [Unknown]
  - Joint swelling [Unknown]
  - Pain in jaw [Unknown]
  - Arthralgia [Unknown]
  - Abdominal pain upper [Unknown]
  - Dyspnoea [Unknown]
  - Activities of daily living impaired [Unknown]
  - Rash [Unknown]
  - Feeling abnormal [Unknown]
  - Lung infection [Unknown]
  - Feeling abnormal [Unknown]
  - Pruritus [Unknown]
  - Fall [Unknown]
  - Sensory disturbance [Unknown]
  - Rectal haemorrhage [Unknown]
  - Upper respiratory tract infection [Unknown]
  - Nausea [Unknown]
  - Vomiting [Unknown]
  - Erythema [Unknown]

NARRATIVE: CASE EVENT DATE: 201510
